FAERS Safety Report 7103213-3 (Version None)
Quarter: 2010Q4

REPORT INFORMATION
  Report Type: 
  Country: None (occurrence: None)
  Receive Date: 20101115
  Receipt Date: 20101104
  Transmission Date: 20110411
  Serious: Yes (Other)
  Sender: FDA-Public Use
  Company Number: DE-B.I. PHARMACEUTICALS,INC./RIDGEFIELD-2010-DE-06046DE

PATIENT
  Age: 51 Year
  Sex: Male

DRUGS (9)
  1. VIRAMUNE [Suspect]
     Indication: HIV INFECTION
     Dates: start: 19990317, end: 20061026
  2. VIRAMUNE [Suspect]
     Dates: start: 20061026, end: 20080923
  3. VIRAMUNE [Suspect]
     Dates: start: 20080923
  4. VIRAMUNE [Suspect]
     Dates: start: 20040411, end: 20050611
  5. ASPIRIN [Concomitant]
     Dates: start: 20020201
  6. DELIX [Concomitant]
     Dosage: 2.5 MG
     Dates: start: 20020201
  7. SORTIS [Concomitant]
     Dosage: 40 MG
     Dates: start: 20020201
  8. COMBIVIR [Concomitant]
     Indication: HIV INFECTION
     Dates: start: 19990317, end: 20061026
  9. COMBIVIR [Concomitant]
     Dates: start: 19980624, end: 19990317

REACTIONS (1)
  - MYOCARDIAL INFARCTION [None]
